FAERS Safety Report 21692799 (Version 1)
Quarter: 2022Q4

REPORT INFORMATION
  Report Type: Spontaneous
  Country: US (occurrence: None)
  Receive Date: 20221206
  Receipt Date: 20221206
  Transmission Date: 20230113
  Serious: No
  Sender: FDA-Public Use
  Company Number: None

PATIENT
  Age: 35 Year
  Sex: Male

DRUGS (2)
  1. HUMIRA [Suspect]
     Active Substance: ADALIMUMAB
     Indication: Hidradenitis
     Dosage: INJECT 2 PENS UNDER THE SKIN ON DAY 1, THEN 1 PEN ON DAY 15, THEN START MAINTENANCE DOSING AS DIRECT
     Route: 058
     Dates: start: 20221117
  2. HUMIRA [Suspect]
     Active Substance: ADALIMUMAB
     Indication: Acne conglobata

REACTIONS (3)
  - Device malfunction [None]
  - Product dose omission issue [None]
  - Product leakage [None]

NARRATIVE: CASE EVENT DATE: 20221202
